FAERS Safety Report 6865794-4 (Version None)
Quarter: 2010Q3

REPORT INFORMATION
  Report Type: 
  Country: None (occurrence: None)
  Receive Date: 20100721
  Receipt Date: 20090113
  Transmission Date: 20110219
  Serious: Yes (Other)
  Sender: FDA-Public Use
  Company Number: US-PFIZER INC-2008034051

PATIENT
  Age: 40 Year
  Sex: Female
  Weight: 65.8 kg

DRUGS (1)
  1. CHANTIX [Suspect]
     Indication: SMOKING CESSATION THERAPY
     Dosage: 1 MG, 2X/DAY
     Dates: start: 20080201, end: 20080201

REACTIONS (3)
  - ANXIETY [None]
  - PANIC ATTACK [None]
  - SUICIDAL IDEATION [None]
